FAERS Safety Report 4669685-9 (Version None)
Quarter: 2005Q2

REPORT INFORMATION
  Report Type: 
  Country: None (occurrence: None)
  Receive Date: 20050520
  Receipt Date: 20050513
  Transmission Date: 20051028
  Serious: Yes (Other)
  Sender: FDA-Public Use
  Company Number: 004824

PATIENT
  Age: 66 Year
  Sex: Female

DRUGS (6)
  1. MEDROXYPROGESTERONE ACETATE [Suspect]
     Dates: start: 19910101, end: 20010101
  2. ESTRADIOL [Suspect]
     Dates: start: 19910101, end: 20010101
  3. CENESTIN (SYNTHETIC CONJUGATED ESTROGENS) TABLET [Suspect]
     Dates: start: 19910101, end: 20010101
  4. PREMARIN [Suspect]
     Dates: start: 19910101, end: 20010101
  5. PROVERA [Suspect]
     Dates: start: 19910101, end: 20010101
  6. PREMPRO [Suspect]
     Dates: start: 19910101, end: 20010101

REACTIONS (3)
  - BREAST CANCER IN SITU [None]
  - OESTROGEN RECEPTOR ASSAY POSITIVE [None]
  - PROGESTERONE RECEPTOR ASSAY POSITIVE [None]
